FAERS Safety Report 9814732 (Version 1)
Quarter: 2014Q1

REPORT INFORMATION
  Report Type: Spontaneous
  Country: US (occurrence: US)
  Receive Date: 20140113
  Receipt Date: 20140113
  Transmission Date: 20141002
  Serious: Yes (Other)
  Sender: FDA-Public Use
  Company Number: US-SANOFI-AVENTIS-2013SA044487

PATIENT
  Age: 57 Year
  Sex: Female

DRUGS (3)
  1. TAXOTERE [Suspect]
  2. INVESTIGATIONAL DRUG [Suspect]
  3. BLINDED THERAPY [Suspect]

REACTIONS (1)
  - Neuropathy peripheral [Unknown]
